FAERS Safety Report 10889699 (Version 1)
Quarter: 2015Q1

REPORT INFORMATION
  Report Type: Spontaneous
  Country: JP (occurrence: JP)
  Receive Date: 20150306
  Receipt Date: 20150306
  Transmission Date: 20150721
  Serious: Yes (Other)
  Sender: FDA-Public Use
  Company Number: JP-ROCHE-1540015

PATIENT
  Age: 67 Year
  Sex: Female
  Weight: 63 kg

DRUGS (2)
  1. TAMIFLU [Suspect]
     Active Substance: OSELTAMIVIR PHOSPHATE
     Route: 048
     Dates: start: 20150209, end: 20150209
  2. TAMIFLU [Suspect]
     Active Substance: OSELTAMIVIR PHOSPHATE
     Indication: INFLUENZA
     Route: 048
     Dates: start: 20150115, end: 20150115

REACTIONS (4)
  - Loss of consciousness [Recovering/Resolving]
  - Altered state of consciousness [Recovered/Resolved]
  - Muscular weakness [Unknown]
  - Head injury [Unknown]

NARRATIVE: CASE EVENT DATE: 20150115
